FAERS Safety Report 11335238 (Version 5)
Quarter: 2016Q1

REPORT INFORMATION
  Report Type: Report from Study
  Country: DE (occurrence: DE)
  Receive Date: 20150804
  Receipt Date: 20160115
  Transmission Date: 20160525
  Serious: Yes (Life-Threatening, Hospitalization, Other)
  Sender: FDA-Public Use
  Company Number: DE-NOVOPROD-458705

PATIENT
  Age: 77 Year
  Sex: Male
  Weight: 113 kg

DRUGS (1)
  1. LIRAGLUTIDE FLEXPEN [Suspect]
     Active Substance: LIRAGLUTIDE
     Indication: TYPE 2 DIABETES MELLITUS
     Dosage: 1.8,MG,QD
     Route: 058
     Dates: start: 20110823, end: 20150305

REACTIONS (1)
  - Spindle cell sarcoma [Not Recovered/Not Resolved]

NARRATIVE: CASE EVENT DATE: 20150720
